FAERS Safety Report 25997999 (Version 1)
Quarter: 2025Q4

REPORT INFORMATION
  Report Type: Report from Study
  Country: US (occurrence: US)
  Receive Date: 20251105
  Receipt Date: 20251105
  Transmission Date: 20260117
  Serious: Yes (Hospitalization, Other)
  Sender: ACADIA PHARMACEUTICALS
  Company Number: US-ACADIA PHARMACEUTICALS INC.-ACA-2025-PIM-011900

PATIENT
  Age: 72 Year
  Sex: Male

DRUGS (12)
  1. NUPLAZID [Suspect]
     Active Substance: PIMAVANSERIN TARTRATE
     Indication: Hallucination
     Dosage: 34 MILLIGRAM, QD
     Route: 048
     Dates: start: 20250729
  2. NUPLAZID [Suspect]
     Active Substance: PIMAVANSERIN TARTRATE
     Indication: Delusion
  3. NUPLAZID [Suspect]
     Active Substance: PIMAVANSERIN TARTRATE
     Indication: Parkinson^s disease
  4. CREXONT [Concomitant]
     Active Substance: CARBIDOPA\LEVODOPA
  5. UROCIT-K [Concomitant]
     Active Substance: POTASSIUM CITRATE
  6. ELIQUIS [Concomitant]
     Active Substance: APIXABAN
  7. DUTASTERIDE [Concomitant]
     Active Substance: DUTASTERIDE
  8. DROXIDOPA [Concomitant]
     Active Substance: DROXIDOPA
  9. QUETIAPINE [Concomitant]
     Active Substance: QUETIAPINE
  10. PANTOPRAZOLE [Concomitant]
     Active Substance: PANTOPRAZOLE
  11. CLOZAPINE [Concomitant]
     Active Substance: CLOZAPINE
  12. GABAPENTIN [Concomitant]
     Active Substance: GABAPENTIN

REACTIONS (3)
  - Nephrolithiasis [Recovered/Resolved]
  - Upper respiratory tract infection [Recovered/Resolved]
  - Urinary tract infection [Recovered/Resolved]

NARRATIVE: CASE EVENT DATE: 20251019
